FAERS Safety Report 6498593-6 (Version None)
Quarter: 2009Q4

REPORT INFORMATION
  Report Type: 
  Country: None (occurrence: None)
  Receive Date: 20091215
  Receipt Date: 20091210
  Transmission Date: 20100525
  Serious: Yes (Death)
  Sender: FDA-Public Use
  Company Number: FR-ROCHE-674285

PATIENT
  Sex: Female

DRUGS (4)
  1. RIBAVIRIN [Suspect]
     Indication: HEPATITIS C
     Route: 048
  2. RITUXIMAB [Suspect]
     Indication: HEPATITIS C
     Route: 042
     Dates: start: 20041125, end: 20051215
  3. CISPLATIN [Suspect]
     Route: 065
     Dates: start: 20050407
  4. ADRIAMYCIN PFS [Suspect]
     Route: 065
     Dates: start: 20050407

REACTIONS (1)
  - HEPATIC NEOPLASM MALIGNANT [None]
